FAERS Safety Report 7753387-6 (Version None)
Quarter: 2011Q3

REPORT INFORMATION
  Report Type: 
  Country: None (occurrence: None)
  Receive Date: 20110915
  Receipt Date: 20110905
  Transmission Date: 20111222
  Serious: Yes (Other)
  Sender: FDA-Public Use
  Company Number: PHHY2011GB80214

PATIENT
  Sex: Female

DRUGS (7)
  1. TRAMADOL HCL [Suspect]
     Dosage: UNK UKN, UNK
     Route: 064
  2. PAROXETINE HCL [Suspect]
     Dosage: 20 MG, TID
     Route: 064
     Dates: start: 19990101
  3. QUETIAPINE [Suspect]
     Dosage: UNK UKN, UNK
     Route: 064
  4. CLONAZEPAM [Suspect]
     Dosage: UNK UKN, UNK
     Route: 064
  5. LORAZEPAM [Suspect]
     Dosage: UNK UKN, UNK
  6. MIRTAZAPINE [Suspect]
     Dosage: UNK UKN, UNK
     Route: 064
  7. PROCYCLIDINE HYDROCHLORIDE [Suspect]
     Indication: OCULOGYRIC CRISIS
     Dosage: UNK UKN, UNK
     Route: 064

REACTIONS (2)
  - PREMATURE BABY [None]
  - MATERNAL EXPOSURE DURING PREGNANCY [None]
